FAERS Safety Report 10177295 (Version 1)
Quarter: 2014Q2

REPORT INFORMATION
  Report Type: Spontaneous
  Country: AT (occurrence: AT)
  Receive Date: 20140516
  Receipt Date: 20140516
  Transmission Date: 20141212
  Serious: Yes (Other)
  Sender: FDA-Public Use
  Company Number: AT-GLAXOSMITHKLINE-B0994205A

PATIENT
  Sex: Female

DRUGS (1)
  1. VOTRIENT [Suspect]
     Indication: METASTATIC RENAL CELL CARCINOMA
     Dosage: 800MG PER DAY
     Route: 065
     Dates: start: 20140508

REACTIONS (5)
  - Oedema [Not Recovered/Not Resolved]
  - Ascites [Not Recovered/Not Resolved]
  - Dyspnoea at rest [Not Recovered/Not Resolved]
  - Brain natriuretic peptide [Not Recovered/Not Resolved]
  - Ejection fraction [Not Recovered/Not Resolved]
